FAERS Safety Report 18420562 (Version 2)
Quarter: 2020Q4

REPORT INFORMATION
  Report Type: Report from Study
  Country: None (occurrence: US)
  Receive Date: 20201023
  Receipt Date: 20201216
  Transmission Date: 20210114
  Serious: Yes (Other)
  Sender: FDA-Public Use
  Company Number: US-ABBVIE-20K-163-3352683-00

PATIENT
  Age: 58 Year
  Sex: Male

DRUGS (1)
  1. HUMIRA [Suspect]
     Active Substance: ADALIMUMAB
     Indication: PSORIATIC ARTHROPATHY
     Route: 058
     Dates: start: 20200303

REACTIONS (24)
  - Deafness [Unknown]
  - Arthritis [Unknown]
  - Hypersomnia [Unknown]
  - Joint stiffness [Recovering/Resolving]
  - Fatigue [Unknown]
  - Pain [Unknown]
  - Constipation [Unknown]
  - Pain in extremity [Recovering/Resolving]
  - Skin fissures [Unknown]
  - Scab [Unknown]
  - Headache [Unknown]
  - Skin laceration [Recovered/Resolved]
  - Therapeutic product effect incomplete [Unknown]
  - Therapeutic response shortened [Recovered/Resolved]
  - Psoriasis [Not Recovered/Not Resolved]
  - Loss of personal independence in daily activities [Unknown]
  - Gait disturbance [Unknown]
  - Skin haemorrhage [Unknown]
  - Pain of skin [Unknown]
  - Joint swelling [Recovering/Resolving]
  - Myalgia [Unknown]
  - Arthralgia [Recovering/Resolving]
  - Arthritis [Recovering/Resolving]
  - Sensitive skin [Unknown]

NARRATIVE: CASE EVENT DATE: 2020
